FAERS Safety Report 5879320-X (Version None)
Quarter: 2008Q3

REPORT INFORMATION
  Report Type: 
  Country: None (occurrence: None)
  Receive Date: 20080910
  Receipt Date: 20080910
  Transmission Date: 20090109
  Serious: Yes (Other)
  Sender: FDA-Public Use
  Company Number: None

PATIENT
  Age: 67 Year
  Sex: Male
  Weight: 52 kg

DRUGS (9)
  1. PANITUMUMAB [Suspect]
     Indication: HEAD AND NECK CANCER
     Dosage: WEEKLY, IV, 2.5MG/KG
     Route: 042
     Dates: start: 20080818, end: 20080902
  2. CARBOPLATIN [Suspect]
     Dosage: AUC 1.5 IV WKLY
  3. TAXOL [Suspect]
     Dosage: 30MG/M2 IV WKLY
     Route: 042
  4. FLORINEF ACETATE [Concomitant]
  5. KBL SOLUTION [Concomitant]
  6. NYSTATIN [Concomitant]
  7. REGLAN [Concomitant]
  8. ROXICET [Concomitant]
  9. ZOFRAN [Concomitant]

REACTIONS (3)
  - MOUTH HAEMORRHAGE [None]
  - MUCOSAL INFLAMMATION [None]
  - NEUTROPENIA [None]
